FAERS Safety Report 6436481-1 (Version None)
Quarter: 2009Q4

REPORT INFORMATION
  Report Type: 
  Country: None (occurrence: None)
  Receive Date: 20091111
  Receipt Date: 20091030
  Transmission Date: 20100525
  Serious: Yes (Death, Hospitalization)
  Sender: FDA-Public Use
  Company Number: DE-PFIZER INC-2009259726

PATIENT
  Age: 62 Year
  Sex: Female
  Weight: 86 kg

DRUGS (6)
  1. SUNITINIB MALATE [Suspect]
     Indication: PANCREATIC NEUROENDOCRINE TUMOUR
     Dosage: 50 MG, 1X/DAY
     Route: 048
     Dates: start: 20090413, end: 20090825
  2. ACETYLSALICYLIC ACID [Concomitant]
     Dosage: UNK
     Route: 048
     Dates: start: 20080601
  3. PANTOPRAZOLE SODIUM [Concomitant]
     Dosage: UNK
     Route: 048
     Dates: start: 20070801
  4. METOPROLOL [Concomitant]
     Route: 048
  5. CANDESARTAN [Concomitant]
     Dosage: UNK
     Route: 048
     Dates: start: 20090127
  6. SANDOSTATIN [Concomitant]
     Dosage: UNK
     Route: 030
     Dates: start: 20071122, end: 20090801

REACTIONS (4)
  - CONFUSIONAL STATE [None]
  - DIARRHOEA [None]
  - HEPATIC FAILURE [None]
  - OEDEMA [None]
